FAERS Safety Report 24392407 (Version 1)
Quarter: 2024Q4

REPORT INFORMATION
  Report Type: Spontaneous
  Country: US (occurrence: US)
  Receive Date: 20241003
  Receipt Date: 20241003
  Transmission Date: 20250114
  Serious: No
  Sender: SANOFI AVENTIS
  Company Number: US-SA-2024SA285089

PATIENT
  Age: 72 Year
  Sex: Female

DRUGS (10)
  1. DUPIXENT [Suspect]
     Active Substance: DUPILUMAB
     Indication: Dermatitis atopic
     Dosage: 300 MG, QOW
     Route: 058
     Dates: start: 20240819
  2. CLOBETASOL [Concomitant]
     Active Substance: CLOBETASOL
     Dosage: UNKNOWN
  3. LATANOPROST [Concomitant]
     Active Substance: LATANOPROST
     Dosage: UNK
  4. ATORVASTATIN [Concomitant]
     Active Substance: ATORVASTATIN
     Dosage: UNKNOWN
  5. CARVEDILOL [Concomitant]
     Active Substance: CARVEDILOL
     Dosage: UNKNOWN
  6. EZETIMIBE [Concomitant]
     Active Substance: EZETIMIBE
     Dosage: UNKNOWN
  7. HYDROCHLOROTHIAZIDE [Concomitant]
     Active Substance: HYDROCHLOROTHIAZIDE
     Dosage: UNKNOWN
  8. LEVETIRACETAM [Concomitant]
     Active Substance: LEVETIRACETAM
     Dosage: UNKNOWN
  9. PAXLOVID [Concomitant]
     Active Substance: NIRMATRELVIR\RITONAVIR
     Dosage: UNKNOWN
  10. TERBINAFINE [Concomitant]
     Active Substance: TERBINAFINE
     Dosage: UNKNOWN

REACTIONS (2)
  - Throat irritation [Unknown]
  - Injection site induration [Unknown]

NARRATIVE: CASE EVENT DATE: 20240101
